FAERS Safety Report 18502341 (Version 1)
Quarter: 2020Q4

REPORT INFORMATION
  Report Type: Other
  Country: US (occurrence: US)
  Receive Date: 20201113
  Receipt Date: 20201113
  Transmission Date: 20210114
  Serious: No
  Sender: FDA-Public Use
  Company Number: US-LEADIANT BIOSCIENCES INC-2020STPI000242

PATIENT
  Sex: Male

DRUGS (6)
  1. CHLOROPHYLL [Concomitant]
  2. POTASSIUM CITRATE. [Concomitant]
     Active Substance: POTASSIUM CITRATE
  3. VITAMIN D 2000 [Concomitant]
     Active Substance: VITAMIN D NOS
  4. CYSTARAN [Suspect]
     Active Substance: CYSTEAMINE HYDROCHLORIDE
     Indication: CORNEAL DEPOSITS
     Dosage: 1 GTT DROPS, IN EACH EYE 10 TIMES DAILEY
     Route: 047
     Dates: start: 20150828
  5. IBUPROFEN. [Concomitant]
     Active Substance: IBUPROFEN
  6. CALCIUM [Concomitant]
     Active Substance: CALCIUM

REACTIONS (1)
  - Intentional product misuse [Unknown]
